FAERS Safety Report 19156802 (Version 1)
Quarter: 2021Q2

REPORT INFORMATION
  Report Type: Spontaneous
  Country: US (occurrence: US)
  Receive Date: 20210419
  Receipt Date: 20210419
  Transmission Date: 20210717
  Serious: Yes (Other)
  Sender: FDA-Public Use
  Company Number: None

PATIENT
  Age: 88 Year
  Sex: Female
  Weight: 57.15 kg

DRUGS (2)
  1. BENDEKA [Suspect]
     Active Substance: BENDAMUSTINE HYDROCHLORIDE
     Indication: B-CELL SMALL LYMPHOCYTIC LYMPHOMA
     Dosage: ?          OTHER FREQUENCY:DAYS 1?2EACH CYCLE;?
     Route: 040
     Dates: start: 20210208, end: 202104
  2. RUXIENCE [Suspect]
     Active Substance: RITUXIMAB-PVVR
     Indication: B-CELL SMALL LYMPHOCYTIC LYMPHOMA
     Dosage: ?          OTHER FREQUENCY:DAY 1 EACH CYCLE;?
     Route: 040
     Dates: start: 20210208, end: 20210406

REACTIONS (11)
  - Rash erythematous [None]
  - Oedema peripheral [None]
  - Rash [None]
  - Burning sensation [None]
  - Blister rupture [None]
  - Tenderness [None]
  - Blister [None]
  - Dry mouth [None]
  - Pain [None]
  - Secretion discharge [None]
  - Stevens-Johnson syndrome [None]

NARRATIVE: CASE EVENT DATE: 20210405
